FAERS Safety Report 6369873-X (Version None)
Quarter: 2009Q3

REPORT INFORMATION
  Report Type: 
  Country: None (occurrence: None)
  Receive Date: 20090917
  Receipt Date: 20090910
  Transmission Date: 20100115
  Serious: Yes (Hospitalization)
  Sender: FDA-Public Use
  Company Number: 100008794

PATIENT
  Age: 76 Year
  Sex: Female

DRUGS (10)
  1. THYROLAR-0.25 [Suspect]
     Indication: HYPOTHYROIDISM
     Dosage: SEE IMAGE
     Route: 048
     Dates: start: 19700101, end: 20070101
  2. THYROLAR-0.25 [Suspect]
     Indication: HYPOTHYROIDISM
     Dosage: SEE IMAGE
     Route: 048
     Dates: start: 20070101, end: 20090801
  3. THYROLAR-0.25 [Suspect]
     Indication: HYPOTHYROIDISM
     Dosage: SEE IMAGE
     Route: 048
     Dates: start: 20090801
  4. PREMPRO [Concomitant]
  5. ZOLOFT [Concomitant]
  6. PLAVIX [Concomitant]
  7. AVALIDE [Concomitant]
  8. TOPROL-XL [Concomitant]
  9. TRAMADOL HCL [Concomitant]
  10. NEXIUM [Concomitant]

REACTIONS (11)
  - ASTHENIA [None]
  - BLOOD PRESSURE INCREASED [None]
  - BLOOD THYROID STIMULATING HORMONE DECREASED [None]
  - DRY SKIN [None]
  - EYE OEDEMA [None]
  - HEADACHE [None]
  - LETHARGY [None]
  - LIP SWELLING [None]
  - THYROXINE FREE DECREASED [None]
  - TRANSIENT ISCHAEMIC ATTACK [None]
  - TRI-IODOTHYRONINE FREE DECREASED [None]
